FAERS Safety Report 24916722 (Version 1)
Quarter: 2025Q1

REPORT INFORMATION
  Report Type: Spontaneous
  Country: JP (occurrence: JP)
  Receive Date: 20250203
  Receipt Date: 20250203
  Transmission Date: 20250409
  Serious: Yes (Other)
  Sender: ABBVIE
  Company Number: JP-TAKEDA-2025TJP001073

PATIENT
  Sex: Male

DRUGS (1)
  1. LEUPLIN [Suspect]
     Active Substance: LEUPROLIDE ACETATE
     Indication: Prostate cancer
     Dosage: FORM STRENGTH:11.25 MILLIGRAM, Q3MONTHS
     Route: 065

REACTIONS (1)
  - Coronavirus infection [Unknown]

NARRATIVE: CASE EVENT DATE: 20250101
